FAERS Safety Report 8025551-2 (Version None)
Quarter: 2012Q1

REPORT INFORMATION
  Report Type: 
  Country: None (occurrence: None)
  Receive Date: 20120105
  Receipt Date: 20111228
  Transmission Date: 20120608
  Serious: Yes (Other)
  Sender: FDA-Public Use
  Company Number: US-ABBOTT-11P-163-0887509-00

PATIENT
  Sex: Male
  Weight: 113.5 kg

DRUGS (5)
  1. ANDROGEL [Suspect]
     Indication: BLOOD TESTOSTERONE DECREASED
     Dosage: 4 PUMPS PER DAY
     Route: 061
     Dates: start: 20110201, end: 20111201
  2. TERAZOSIN HCL [Concomitant]
     Indication: PROSTATOMEGALY
  3. MULTI-VITAMINS [Concomitant]
     Indication: PRODUCT USED FOR UNKNOWN INDICATION
  4. OMEPRAZOLE [Concomitant]
     Indication: GASTROOESOPHAGEAL REFLUX DISEASE
  5. ATENELOL [Concomitant]
     Indication: HYPERTENSION

REACTIONS (7)
  - ENERGY INCREASED [None]
  - OEDEMA PERIPHERAL [None]
  - UMBILICAL HERNIA, OBSTRUCTIVE [None]
  - SLEEP APNOEA SYNDROME [None]
  - MOOD SWINGS [None]
  - PERSONALITY CHANGE [None]
  - THERAPEUTIC RESPONSE UNEXPECTED [None]
